FAERS Safety Report 20616503 (Version 1)
Quarter: 2022Q1

REPORT INFORMATION
  Report Type: Spontaneous
  Country: US (occurrence: None)
  Receive Date: 20220321
  Receipt Date: 20220321
  Transmission Date: 20220423
  Serious: Yes (Hospitalization)
  Sender: FDA-Public Use
  Company Number: None

PATIENT
  Age: 24 Year
  Sex: Male

DRUGS (5)
  1. NORDITROPIN [Suspect]
     Active Substance: SOMATROPIN
     Indication: Hypopituitarism
     Dosage: 15MG/1.5ML;? INJECT 0.4 MG UNDER THE SKIN (SUBCUTANEOUS INJECTION) DAILY-PEN GOOD FOR UP TO 28 DAYS
     Route: 058
     Dates: start: 20180419
  2. DIGOXIN TAB [Concomitant]
  3. ENALAPRIL TAB [Concomitant]
  4. LEVOTHYROXIN TAB [Concomitant]
  5. WARFARIN TAB [Concomitant]

REACTIONS (2)
  - Therapy interrupted [None]
  - Hospitalisation [None]

NARRATIVE: CASE EVENT DATE: 20220308
